FAERS Safety Report 13573790 (Version 2)
Quarter: 2017Q4

REPORT INFORMATION
  Report Type: Spontaneous
  Country: None (occurrence: SE)
  Receive Date: 20170523
  Receipt Date: 20171115
  Transmission Date: 20180320
  Serious: Yes (Death)
  Sender: FDA-Public Use
  Company Number: SE-ALSI-201700145

PATIENT
  Age: 74 Year
  Sex: Female

DRUGS (1)
  1. MEDICINSK OXYGEN 100% [Suspect]
     Active Substance: OXYGEN
     Indication: CHRONIC OBSTRUCTIVE PULMONARY DISEASE
     Route: 055

REACTIONS (4)
  - Cardiac arrest [Fatal]
  - Wrong technique in product usage process [Fatal]
  - Hypoxia [Fatal]
  - Accidental underdose [Fatal]
